FAERS Safety Report 10163573 (Version 1)
Quarter: 2014Q2

REPORT INFORMATION
  Report Type: Report from Study
  Country: AR (occurrence: AR)
  Receive Date: 20140509
  Receipt Date: 20140509
  Transmission Date: 20141212
  Serious: Yes (Other)
  Sender: FDA-Public Use
  Company Number: PHHY2014AR056542

PATIENT
  Age: 47 Year
  Sex: Male

DRUGS (1)
  1. EXFORGE D [Suspect]
     Indication: HYPERTENSION
     Dosage: 1 TABLET (320/10/25 MG), DAILY
     Route: 048

REACTIONS (1)
  - Diabetes mellitus [Unknown]
